FAERS Safety Report 7905090-7 (Version None)
Quarter: 2011Q4

REPORT INFORMATION
  Report Type: 
  Country: None (occurrence: None)
  Receive Date: 20111109
  Receipt Date: 20111108
  Transmission Date: 20120403
  Serious: Yes (Death, Other)
  Sender: FDA-Public Use
  Company Number: PHHY2011BR098134

PATIENT
  Sex: Male

DRUGS (5)
  1. SIMVASTATIN [Concomitant]
     Indication: CARDIAC DISORDER
     Dosage: 1 DF, A DAY
     Dates: start: 20070101
  2. SOMALGIN [Concomitant]
     Indication: CARDIAC DISORDER
     Dosage: 325 MG, A DAY
     Dates: start: 20070101
  3. EXELON [Suspect]
     Indication: DEMENTIA ALZHEIMER'S TYPE
     Dosage: 9 MG/5 CM2, 1 PATCH A DAY
     Route: 062
     Dates: start: 20101101
  4. DIGOXIN [Concomitant]
     Indication: CARDIAC DISORDER
     Dosage: 0.5 DF, UNK
     Dates: start: 20070101
  5. LASIX [Concomitant]
     Indication: CARDIAC DISORDER
     Dosage: 1 DF, DAILY
     Dates: start: 20070101

REACTIONS (4)
  - MYOCARDIAL INFARCTION [None]
  - DEATH [None]
  - HYPERSENSITIVITY [None]
  - WOUND [None]
